FAERS Safety Report 9895421 (Version 1)
Quarter: 2014Q1

REPORT INFORMATION
  Report Type: Spontaneous
  Country: US (occurrence: US)
  Receive Date: 20140213
  Receipt Date: 20140213
  Transmission Date: 20141002
  Serious: No
  Sender: FDA-Public Use
  Company Number: US-BRISTOL-MYERS SQUIBB COMPANY-17361015

PATIENT
  Age: 57 Year
  Sex: Female
  Weight: 85.26 kg

DRUGS (1)
  1. ORENCIA [Suspect]
     Dosage: LAST INF:30JAN13
     Route: 058
     Dates: start: 2012

REACTIONS (3)
  - Sinusitis [Unknown]
  - Ear infection [Unknown]
  - Incorrect product storage [Unknown]
